FAERS Safety Report 5106883-4 (Version None)
Quarter: 2006Q3

REPORT INFORMATION
  Report Type: 
  Country: None (occurrence: None)
  Receive Date: 20060918
  Receipt Date: 20060911
  Transmission Date: 20061208
  Serious: Yes (Other)
  Sender: FDA-Public Use
  Company Number: GB-NOVOPROD-256917

PATIENT
  Age: 80 Year
  Sex: Female

DRUGS (2)
  1. MIXTARD HUMAN 70/30 [Suspect]
     Indication: INSULIN-REQUIRING TYPE II DIABETES MELLITUS
  2. ACTRAPID [Suspect]
     Indication: INSULIN-REQUIRING TYPE II DIABETES MELLITUS
     Route: 042

REACTIONS (5)
  - DERMATITIS EXFOLIATIVE [None]
  - LIP HAEMORRHAGE [None]
  - NOSOCOMIAL INFECTION [None]
  - SKIN ULCER [None]
  - VULVAL ULCERATION [None]
